FAERS Safety Report 9102334 (Version 2)
Quarter: 2013Q1

REPORT INFORMATION
  Report Type: Spontaneous
  Country: PT (occurrence: PT)
  Receive Date: 20130219
  Receipt Date: 20130228
  Transmission Date: 20140127
  Serious: Yes (Hospitalization, Other)
  Sender: FDA-Public Use
  Company Number: PT-PFIZER INC-2013059572

PATIENT
  Age: 37 Year
  Sex: Male
  Weight: 62 kg

DRUGS (3)
  1. CELEBREX [Suspect]
     Indication: BACK PAIN
     Dosage: 100 MG, 4X/DAY
     Route: 048
     Dates: start: 20121215, end: 20130104
  2. BEN-U-RON [Concomitant]
     Indication: BACK PAIN
     Dosage: 3 G, 1X/DAY
     Route: 048
     Dates: start: 20121215
  3. ZALDIAR [Concomitant]
     Indication: BACK PAIN
     Dosage: 1 DF, UNK
     Route: 048
     Dates: start: 20121230, end: 20130102

REACTIONS (5)
  - Pancreatitis acute [Recovered/Resolved]
  - Leukocytosis [Recovered/Resolved]
  - Neutrophilia [Recovered/Resolved]
  - C-reactive protein increased [Recovered/Resolved]
  - Amylase increased [Recovered/Resolved]
